FAERS Safety Report 15380603 (Version 1)
Quarter: 2018Q3

REPORT INFORMATION
  Report Type: Spontaneous
  Country: US (occurrence: US)
  Receive Date: 20180913
  Receipt Date: 20180913
  Transmission Date: 20181010
  Serious: No
  Sender: FDA-Public Use
  Company Number: US-ASTELLAS-2017US052910

PATIENT
  Sex: Male

DRUGS (1)
  1. XTANDI [Suspect]
     Active Substance: ENZALUTAMIDE
     Indication: PROSTATE CANCER
     Route: 048
     Dates: start: 20171117

REACTIONS (7)
  - Anaemia [Unknown]
  - Back pain [Unknown]
  - Fatigue [Unknown]
  - Hot flush [Unknown]
  - Lethargy [Unknown]
  - Arthralgia [Unknown]
  - Myalgia [Unknown]
